FAERS Safety Report 24829070 (Version 5)
Quarter: 2025Q1

REPORT INFORMATION
  Report Type: Spontaneous
  Country: IT (occurrence: IT)
  Receive Date: 20250110
  Receipt Date: 20250325
  Transmission Date: 20250408
  Serious: Yes (Hospitalization, Other)
  Sender: AUROBINDO
  Company Number: IT-SANDOZ-SDZ2024US104658

PATIENT
  Age: 65 Year
  Sex: Male
  Weight: 80 kg

DRUGS (13)
  1. LEVOLEUCOVORIN [Suspect]
     Active Substance: LEVOLEUCOVORIN
     Indication: Colorectal cancer metastatic
     Dosage: 382 MILLIGRAM, ONCE A DAY (382 MG, ONCE)
     Route: 042
     Dates: start: 20241011, end: 20241011
  2. LEVOLEUCOVORIN [Suspect]
     Active Substance: LEVOLEUCOVORIN
     Route: 042
     Dates: start: 20241011, end: 20241011
  3. LOPERAMIDE [Suspect]
     Active Substance: LOPERAMIDE
     Indication: Prophylaxis
     Dosage: 12 MILLIGRAM, ONCE A DAY (4 MG, TID)
     Route: 048
     Dates: start: 20241010, end: 20241012
  4. LOPERAMIDE [Suspect]
     Active Substance: LOPERAMIDE
     Indication: Prophylaxis against diarrhoea
     Route: 048
     Dates: start: 20241013
  5. LOPERAMIDE [Suspect]
     Active Substance: LOPERAMIDE
     Indication: Diarrhoea
  6. OXALIPLATIN [Suspect]
     Active Substance: OXALIPLATIN
     Indication: Colorectal cancer metastatic
     Dosage: 162.4 MILLIGRAM, ONCE A DAY (162.4 MG, ONCE)
     Route: 042
     Dates: start: 20241011, end: 20241011
  7. FLUOROURACIL [Suspect]
     Active Substance: FLUOROURACIL
     Indication: Colorectal cancer metastatic
     Dosage: 764 MILLIGRAM, ONCE A DAY (764 MG, ONCE)
     Route: 042
     Dates: start: 20241011, end: 20241011
  8. FLUOROURACIL [Suspect]
     Active Substance: FLUOROURACIL
     Dosage: 4584 MILLIGRAM, ONCE A DAY (TOTAL)
     Route: 042
     Dates: start: 20241011, end: 20241013
  9. TUCATINIB [Suspect]
     Active Substance: TUCATINIB
     Indication: Colorectal cancer metastatic
     Dosage: 300 MILLIGRAM, TWO TIMES A DAY (600 MG ONCE A DAY)
     Route: 048
     Dates: start: 20241010, end: 20241021
  10. TRASTUZUMAB [Suspect]
     Active Substance: TRASTUZUMAB
     Indication: Colorectal cancer metastatic
     Dosage: 640 MILLIGRAM, ONCE A DAY (640 MG, ONCE)
     Route: 042
     Dates: start: 20241010, end: 20241010
  11. IMODIUM [Suspect]
     Active Substance: LOPERAMIDE HYDROCHLORIDE
     Indication: Prophylaxis
     Dosage: 12 MILLIGRAM, ONCE A DAY (4 MG, TID)
     Route: 048
     Dates: start: 20241010, end: 20241012
  12. IMODIUM [Suspect]
     Active Substance: LOPERAMIDE HYDROCHLORIDE
     Indication: Diarrhoea
     Dosage: 4 MILLIGRAM, 3 TIMES A DAY
     Route: 048
     Dates: start: 20241013
  13. IMODIUM [Suspect]
     Active Substance: LOPERAMIDE HYDROCHLORIDE
     Indication: Prophylaxis against diarrhoea

REACTIONS (5)
  - Acute kidney injury [Recovered/Resolved]
  - Klebsiella sepsis [Unknown]
  - Vomiting [Unknown]
  - Diarrhoea [Unknown]
  - Anaemia [Unknown]

NARRATIVE: CASE EVENT DATE: 20241013
